FAERS Safety Report 10243741 (Version 1)
Quarter: 2014Q2

REPORT INFORMATION
  Report Type: Spontaneous
  Country: US (occurrence: None)
  Receive Date: 20140616
  Receipt Date: 20140616
  Transmission Date: 20141212
  Serious: Yes (Other)
  Sender: FDA-Public Use
  Company Number: None

PATIENT
  Age: 44 Year
  Sex: Female

DRUGS (1)
  1. HUMIRA 40MG/0.8ML PEN ABBVIE [Suspect]
     Indication: PSORIASIS
     Route: 058
     Dates: start: 20140520

REACTIONS (2)
  - Sinusitis [None]
  - Smear cervix abnormal [None]
